FAERS Safety Report 6838761-4 (Version None)
Quarter: 2010Q3

REPORT INFORMATION
  Report Type: 
  Country: None (occurrence: None)
  Receive Date: 20100713
  Receipt Date: 20070606
  Transmission Date: 20110219
  Serious: No
  Sender: FDA-Public Use
  Company Number: US-PFIZER INC-2007047123

PATIENT
  Sex: Female
  Weight: 83.9 kg

DRUGS (4)
  1. CHANTIX [Suspect]
     Indication: SMOKING CESSATION THERAPY
     Route: 048
     Dates: start: 20070529
  2. PENICILLIN NOS [Concomitant]
     Indication: TOOTH INFECTION
  3. BENADRYL [Concomitant]
     Indication: SLEEP DISORDER
     Dosage: PRN AT NIGHT
  4. IBUPROFEN [Concomitant]
     Indication: HYPERSENSITIVITY

REACTIONS (4)
  - DRUG INEFFECTIVE [None]
  - EYE INJURY [None]
  - FLATULENCE [None]
  - HEADACHE [None]
